FAERS Safety Report 14290990 (Version 4)
Quarter: 2018Q1

REPORT INFORMATION
  Report Type: Report from Study
  Country: BE (occurrence: BE)
  Receive Date: 20171215
  Receipt Date: 20180119
  Transmission Date: 20180509
  Serious: Yes (Hospitalization)
  Sender: FDA-Public Use
  Company Number: BE-PFIZER INC-2017527680

PATIENT
  Age: 71 Year
  Sex: Female
  Weight: 58 kg

DRUGS (17)
  1. ATROPINE. [Concomitant]
     Active Substance: ATROPINE
     Dosage: AS NECESSARY
     Route: 058
  2. IMODIUM [Concomitant]
     Active Substance: LOPERAMIDE HYDROCHLORIDE
     Dosage: 10 MG, AS NEEDED
     Route: 048
     Dates: start: 20171018
  3. PANTOPRAZOLE [Concomitant]
     Active Substance: PANTOPRAZOLE
     Dosage: 20 MG, ALTERNATE DAY
     Route: 048
     Dates: start: 20170927
  4. IRINOTECAN HCL [Suspect]
     Active Substance: IRINOTECAN HYDROCHLORIDE
     Indication: COLORECTAL CANCER METASTATIC
     Dosage: 60 MG/ML: 1 ML, CYCLIC
     Route: 042
  5. LEUCOVORIN /00566701/ [Suspect]
     Active Substance: LEUCOVORIN
     Indication: COLORECTAL CANCER METASTATIC
     Dosage: UNK, CYCLIC
     Route: 042
  6. ALOXI [Concomitant]
     Active Substance: PALONOSETRON HYDROCHLORIDE
     Dosage: 0.25 MG, AS NEEDED
     Route: 042
     Dates: start: 20171004
  7. DAFALGAN FORTE [Concomitant]
     Dosage: 4 G, AS NEEDED
     Route: 048
     Dates: start: 20161109
  8. CACIT D3 [Concomitant]
     Active Substance: CALCIUM\CHOLECALCIFEROL
     Dosage: 1000MG/880IE
     Route: 048
  9. FLUOROURACIL. [Suspect]
     Active Substance: FLUOROURACIL
     Indication: COLORECTAL CANCER METASTATIC
     Dosage: 1 DF, CYCLIC
     Route: 042
  10. PROLIA [Concomitant]
     Active Substance: DENOSUMAB
     Dosage: 1 ML, UNK (60 MG/ML: 1 ML)
     Route: 058
     Dates: start: 20171018
  11. ATROPINE. [Concomitant]
     Active Substance: ATROPINE
     Dosage: 0.25 MG, AS NEEDED
     Route: 058
     Dates: start: 20171004
  12. BETMIGA [Concomitant]
     Active Substance: MIRABEGRON
     Dosage: 50 MG, 1X/DAY
     Route: 048
     Dates: start: 20171018
  13. AACIDEXAM /00016002/ [Concomitant]
     Dosage: 10 MG, AS NEEDED
     Route: 042
     Dates: start: 20171004
  14. MOVICOL [Concomitant]
     Active Substance: POLYETHYLENE GLYCOL 3350\POTASSIUM CHLORIDE\SODIUM BICARBONATE\SODIUM CHLORIDE
     Dosage: 13.8 G, 1X/DAY
     Route: 048
     Dates: start: 20161109
  15. FEROGRAD-500 /00191801/ [Concomitant]
     Dosage: 525 MG, 1X/DAY
     Route: 048
     Dates: start: 20161109
  16. CACIT D3 [Concomitant]
     Active Substance: CALCIUM\CHOLECALCIFEROL
  17. AFLIBERCEPT [Suspect]
     Active Substance: AFLIBERCEPT
     Indication: COLORECTAL CANCER METASTATIC
     Dosage: UNK, CYCLIC
     Route: 042
     Dates: start: 20171004, end: 20171004

REACTIONS (3)
  - Decreased appetite [Unknown]
  - Hypocalcaemia [Unknown]
  - General physical health deterioration [Unknown]

NARRATIVE: CASE EVENT DATE: 20171108
